FAERS Safety Report 9584108 (Version 2)
Quarter: 2013Q4

REPORT INFORMATION
  Report Type: Spontaneous
  Country: US (occurrence: US)
  Receive Date: 20131002
  Receipt Date: 20131002
  Transmission Date: 20140711
  Serious: Yes (Other)
  Sender: FDA-Public Use
  Company Number: US-AMGEN-USASP2013042587

PATIENT
  Age: 51 Year
  Sex: Female

DRUGS (5)
  1. ENBREL [Suspect]
     Indication: RHEUMATOID ARTHRITIS
     Dosage: 50 MG, QWK
     Route: 058
     Dates: start: 200706, end: 20130521
  2. CELEXA                             /00582602/ [Concomitant]
     Dosage: 10 MG, UNK
  3. TRAMADOL HCL [Concomitant]
     Indication: PAIN
     Dosage: 50 MG, BID
     Route: 048
     Dates: start: 2010
  4. VITAMIN D                          /00107901/ [Concomitant]
     Indication: VITAMIN D DEFICIENCY
     Dosage: 50000 UNIT, 2 TIMES/WK
     Route: 048
     Dates: start: 2012
  5. WELLBUTRIN [Concomitant]
     Indication: DEPRESSION
     Dosage: UNK
     Route: 048

REACTIONS (5)
  - Cutaneous sarcoidosis [Unknown]
  - Granuloma skin [Unknown]
  - Skin disorder [Unknown]
  - Skin atrophy [Recovering/Resolving]
  - Erythema [Recovering/Resolving]
